FAERS Safety Report 8161071 (Version 2)
Quarter: 2013Q3

REPORT INFORMATION
  Report Type: Spontaneous
  Country: US (occurrence: US)
  Receive Date: 20110929
  Receipt Date: 20130708
  Transmission Date: 20140515
  Serious: No
  Sender: FDA-Public Use
  Company Number: US-BIOGENIDEC-2011BI036685

PATIENT
  Age: 40 Year
  Sex: Male

DRUGS (2)
  1. TYSABRI [Suspect]
     Indication: MULTIPLE SCLEROSIS
     Route: 042
     Dates: start: 20080204, end: 20100506
  2. TYSABRI [Suspect]
     Indication: MULTIPLE SCLEROSIS
     Route: 042
     Dates: start: 20110824

REACTIONS (3)
  - Colonoscopy [Recovered/Resolved]
  - Memory impairment [Not Recovered/Not Resolved]
  - Speech disorder [Not Recovered/Not Resolved]
